FAERS Safety Report 14259059 (Version 2)
Quarter: 2018Q1

REPORT INFORMATION
  Report Type: Other
  Country: CA (occurrence: CA)
  Receive Date: 20171207
  Receipt Date: 20180316
  Transmission Date: 20180508
  Serious: Yes (Congenital Anomaly)
  Sender: FDA-Public Use
  Company Number: CA-DUCHESNAY INC.-2036892

PATIENT
  Age: 9 Year
  Sex: Female

DRUGS (1)
  1. DICLEGIS [Suspect]
     Active Substance: DOXYLAMINE SUCCINATE\PYRIDOXINE HYDROCHLORIDE
     Indication: PRODUCT USED FOR UNKNOWN INDICATION
     Route: 048
     Dates: start: 20061215, end: 20070616

REACTIONS (2)
  - Congenital anomaly [Recovering/Resolving]
  - Tooth hypoplasia [Recovering/Resolving]

NARRATIVE: CASE EVENT DATE: 20130912
